FAERS Safety Report 5450334-7 (Version None)
Quarter: 2007Q3

REPORT INFORMATION
  Report Type: 
  Country: None (occurrence: None)
  Receive Date: 20070912
  Receipt Date: 20070904
  Transmission Date: 20080115
  Serious: Yes (Death, Life-Threatening, Hospitalization)
  Sender: FDA-Public Use
  Company Number: JP-PFIZER INC-2007060623

PATIENT
  Sex: Male
  Weight: 55.5 kg

DRUGS (12)
  1. ZYVOX [Suspect]
     Indication: STAPHYLOCOCCAL SEPSIS
     Dosage: DAILY DOSE:1200MG-FREQ:FREQUENCY:BID
     Route: 042
     Dates: start: 20070713, end: 20070725
  2. ZYVOX [Suspect]
     Indication: ENDOCARDITIS
  3. AMBISOME [Concomitant]
     Route: 042
     Dates: start: 20070717, end: 20070724
  4. GLYMACKEN [Concomitant]
     Route: 042
  5. FOY [Concomitant]
     Route: 042
     Dates: start: 20070714, end: 20070802
  6. LASIX [Concomitant]
     Route: 042
  7. SOLUDACTONE [Concomitant]
     Route: 042
  8. TPN [Concomitant]
     Route: 042
  9. VANCOMYCIN HYDROCHLORIDE [Concomitant]
     Route: 042
     Dates: start: 20070709, end: 20070711
  10. VFEND [Concomitant]
     Route: 042
     Dates: start: 20070707, end: 20070716
  11. MICAFUNGIN [Concomitant]
     Route: 042
     Dates: start: 20070612, end: 20070706
  12. BROACT [Concomitant]
     Route: 042
     Dates: start: 20070619, end: 20070710

REACTIONS (4)
  - ANAEMIA [None]
  - HEPATIC FAILURE [None]
  - PLATELET COUNT DECREASED [None]
  - RENAL FAILURE [None]
